FAERS Safety Report 16389178 (Version 1)
Quarter: 2019Q2

REPORT INFORMATION
  Report Type: Spontaneous
  Country: US (occurrence: US)
  Receive Date: 20190429
  Receipt Date: 20190429
  Transmission Date: 20190711
  Serious: Yes (Hospitalization)
  Sender: FDA-Public Use
  Company Number: None

PATIENT
  Sex: Female

DRUGS (2)
  1. AFINITOR [Suspect]
     Active Substance: EVEROLIMUS
     Indication: ENDOMETRIAL CANCER
     Route: 048
     Dates: start: 20190213, end: 20190417
  2. LETROZOLE 2.5MG TEVA PHARMACEUTICALS USA INC [Suspect]
     Active Substance: LETROZOLE
     Indication: ENDOMETRIAL CANCER
     Route: 048
     Dates: start: 20180213, end: 20190417

REACTIONS (2)
  - Dehydration [None]
  - Colitis ulcerative [None]
